FAERS Safety Report 25247393 (Version 1)
Quarter: 2025Q2

REPORT INFORMATION
  Report Type: Spontaneous
  Country: US (occurrence: US)
  Receive Date: 20250428
  Receipt Date: 20250428
  Transmission Date: 20250716
  Serious: No
  Sender: JOHNSON AND JOHNSON
  Company Number: US-JNJFOC-20250428952

PATIENT
  Age: 82 Year
  Sex: Female
  Weight: 54.4 kg

DRUGS (18)
  1. UPTRAVI [Suspect]
     Active Substance: SELEXIPAG
     Indication: Product used for unknown indication
     Route: 048
  2. TREPROSTINIL [Suspect]
     Active Substance: TREPROSTINIL
     Indication: Connective tissue disorder
     Dosage: (TWO 32 ?G CARTRIDGES)
  3. TREPROSTINIL [Suspect]
     Active Substance: TREPROSTINIL
     Indication: Pulmonary arterial hypertension
     Dates: start: 20241007
  4. TREPROSTINIL [Suspect]
     Active Substance: TREPROSTINIL
     Dates: end: 202502
  5. ADEMPAS [Suspect]
     Active Substance: RIOCIGUAT
     Indication: Product used for unknown indication
     Route: 065
  6. OMEPRAZOLE [Concomitant]
     Active Substance: OMEPRAZOLE
  7. PLANTAGO AFRA SEED [Concomitant]
     Active Substance: PLANTAGO AFRA SEED
  8. MINERALS\VITAMINS [Concomitant]
     Active Substance: MINERALS\VITAMINS
  9. ELIQUIS [Concomitant]
     Active Substance: APIXABAN
  10. FLUOXETINE HYDROCHLORIDE [Concomitant]
     Active Substance: FLUOXETINE HYDROCHLORIDE
  11. ALBUTEROL SULFATE [Concomitant]
     Active Substance: ALBUTEROL SULFATE
  12. DILTIAZEM HYDROCHLORIDE [Concomitant]
     Active Substance: DILTIAZEM HYDROCHLORIDE
  13. LOMOTIL [Concomitant]
     Active Substance: ATROPINE SULFATE\DIPHENOXYLATE HYDROCHLORIDE
  14. BUMETANIDE [Concomitant]
     Active Substance: BUMETANIDE
  15. OXYGEN [Concomitant]
     Active Substance: OXYGEN
  16. SPIRONOLACTONE [Concomitant]
     Active Substance: SPIRONOLACTONE
  17. LUMIGAN [Concomitant]
     Active Substance: BIMATOPROST
  18. SOTATERCEPT [Concomitant]
     Active Substance: SOTATERCEPT

REACTIONS (6)
  - Dyspnoea [Recovered/Resolved]
  - Somnolence [Unknown]
  - Throat irritation [Recovered/Resolved]
  - Mobility decreased [Recovered/Resolved]
  - Therapeutic response decreased [Unknown]
  - Cough [Recovered/Resolved]
